FAERS Safety Report 19930058 (Version 1)
Quarter: 2021Q4

REPORT INFORMATION
  Report Type: Spontaneous
  Country: US (occurrence: US)
  Receive Date: 20211008
  Receipt Date: 20211008
  Transmission Date: 20220303
  Serious: No
  Sender: FDA-Public Use
  Company Number: US-CELGENE-USA-20211000320

PATIENT
  Age: 89 Year
  Sex: Female
  Weight: 53.57 kg

DRUGS (1)
  1. POMALYST [Suspect]
     Active Substance: POMALIDOMIDE
     Indication: Plasma cell myeloma
     Dosage: 2 MILLIGRAM
     Route: 048
     Dates: start: 20210828

REACTIONS (4)
  - Feeling abnormal [Unknown]
  - Nausea [Unknown]
  - Vomiting [Unknown]
  - Headache [Unknown]

NARRATIVE: CASE EVENT DATE: 20210920
